FAERS Safety Report 8228349-5 (Version None)
Quarter: 2012Q1

REPORT INFORMATION
  Report Type: 
  Country: None (occurrence: None)
  Receive Date: 20120322
  Receipt Date: 20110929
  Transmission Date: 20120608
  Serious: No
  Sender: FDA-Public Use
  Company Number: US-BRISTOL-MYERS SQUIBB COMPANY-16070187

PATIENT

DRUGS (1)
  1. ERBITUX [Suspect]
     Dosage: LT#10C00264(18VIALS),10C00203A(2V)JL2013:200MG 8VAILS:100MGLT#10C00001A,FB2013NDC#66733-948-23

REACTIONS (1)
  - INCORRECT STORAGE OF DRUG [None]
